FAERS Safety Report 5479571-2 (Version None)
Quarter: 2007Q3

REPORT INFORMATION
  Report Type: 
  Country: None (occurrence: None)
  Receive Date: 20070906
  Receipt Date: 20061023
  Transmission Date: 20080115
  Serious: Yes (Life-Threatening, Other)
  Sender: FDA-Public Use
  Company Number: HQWYE474124OCT06

PATIENT
  Age: 39 Year
  Sex: Female
  Weight: 72.64 kg

DRUGS (1)
  1. ADVIL [Suspect]
     Indication: PAIN
     Dosage: ONE 200MG CAPSULE EVERY FOUR TO SIX HOURS, ORAL
     Route: 048
     Dates: end: 20060808

REACTIONS (1)
  - ANAPHYLACTIC SHOCK [None]
